FAERS Safety Report 8258167-3 (Version None)
Quarter: 2012Q2

REPORT INFORMATION
  Report Type: 
  Country: None (occurrence: None)
  Receive Date: 20120404
  Receipt Date: 20120329
  Transmission Date: 20120825
  Serious: Yes (Other)
  Sender: FDA-Public Use
  Company Number: PHHY2012JP023026

PATIENT
  Age: 33 Month
  Sex: Female

DRUGS (1)
  1. AREDIA [Suspect]
     Indication: OSTEOGENESIS IMPERFECTA
     Dosage: 0.75 MG/KG, QD, EVERY THREE MONTHS
     Route: 041

REACTIONS (1)
  - FRACTURE [None]
